FAERS Safety Report 6452261-5 (Version None)
Quarter: 2009Q4

REPORT INFORMATION
  Report Type: 
  Country: None (occurrence: None)
  Receive Date: 20091117
  Receipt Date: 20091110
  Transmission Date: 20100525
  Serious: Yes (Hospitalization, Other)
  Sender: FDA-Public Use
  Company Number: 2009SP035489

PATIENT
  Age: 57 Year
  Sex: Female

DRUGS (16)
  1. MIRTAZAPINE [Suspect]
     Indication: DEPRESSION
     Dosage: 30 MG;QD;PO
     Route: 048
  2. VALPROIC ACID [Suspect]
     Indication: DRUG USE FOR UNKNOWN INDICATION
     Dosage: 2500 MG;QD;PO; 2000 MG;QD;PO;1500 MG;QD;PO; 1000 MG;QD;PO;500 MG;QD;PO
     Route: 048
     Dates: start: 20090430, end: 20090506
  3. VALPROIC ACID [Suspect]
     Indication: DRUG USE FOR UNKNOWN INDICATION
     Dosage: 2500 MG;QD;PO; 2000 MG;QD;PO;1500 MG;QD;PO; 1000 MG;QD;PO;500 MG;QD;PO
     Route: 048
     Dates: start: 20090507, end: 20090508
  4. VALPROIC ACID [Suspect]
     Indication: DRUG USE FOR UNKNOWN INDICATION
     Dosage: 2500 MG;QD;PO; 2000 MG;QD;PO;1500 MG;QD;PO; 1000 MG;QD;PO;500 MG;QD;PO
     Route: 048
     Dates: start: 20090509, end: 20090511
  5. VALPROIC ACID [Suspect]
     Indication: DRUG USE FOR UNKNOWN INDICATION
     Dosage: 2500 MG;QD;PO; 2000 MG;QD;PO;1500 MG;QD;PO; 1000 MG;QD;PO;500 MG;QD;PO
     Route: 048
     Dates: start: 20090512, end: 20090513
  6. DULOXETINE HYDROCHLORIDE [Suspect]
     Indication: DRUG USE FOR UNKNOWN INDICATION
     Dosage: 90 MG;QD;PO; 120 MG;QD;PO
     Route: 048
     Dates: end: 20090427
  7. DULOXETINE HYDROCHLORIDE [Suspect]
     Indication: DRUG USE FOR UNKNOWN INDICATION
     Dosage: 90 MG;QD;PO; 120 MG;QD;PO
     Route: 048
     Dates: start: 20090428
  8. ARIPIPRAZOLE [Suspect]
     Indication: DRUG USE FOR UNKNOWN INDICATION
     Dosage: 5 MG;QD;PO 10 MG;QD;PO
     Route: 048
     Dates: start: 20090430, end: 20090503
  9. ARIPIPRAZOLE [Suspect]
     Indication: DRUG USE FOR UNKNOWN INDICATION
     Dosage: 5 MG;QD;PO 10 MG;QD;PO
     Route: 048
     Dates: start: 20090504
  10. LORAZEPAM [Suspect]
     Indication: DRUG USE FOR UNKNOWN INDICATION
     Dosage: 5 MG;QD;PO; 1 MG;QD;PO
     Route: 048
     Dates: start: 20090429, end: 20090505
  11. LORAZEPAM [Suspect]
     Indication: DRUG USE FOR UNKNOWN INDICATION
     Dosage: 5 MG;QD;PO; 1 MG;QD;PO
     Route: 048
     Dates: start: 20090504
  12. LAMOTRIGINE [Suspect]
     Indication: DRUG USE FOR UNKNOWN INDICATION
     Dosage: 150 MG;QD;PO; 200 MG;QD;PO
     Route: 048
     Dates: end: 20090429
  13. LAMOTRIGINE [Suspect]
     Indication: DRUG USE FOR UNKNOWN INDICATION
     Dosage: 150 MG;QD;PO; 200 MG;QD;PO
     Route: 048
     Dates: start: 20090430
  14. MELPERONE (MELPERONE) [Suspect]
     Indication: DRUG USE FOR UNKNOWN INDICATION
     Dosage: 50 MG;QD;PO; 25 MG;QD; PO
     Route: 048
     Dates: start: 20090430, end: 20090505
  15. MELPERONE (MELPERONE) [Suspect]
     Indication: DRUG USE FOR UNKNOWN INDICATION
     Dosage: 50 MG;QD;PO; 25 MG;QD; PO
     Route: 048
     Dates: start: 20090506, end: 20090507
  16. IODIDE (CON.) [Concomitant]

REACTIONS (4)
  - ATAXIA [None]
  - DRUG LEVEL INCREASED [None]
  - ENCEPHALOPATHY [None]
  - HYPERREFLEXIA [None]
